FAERS Safety Report 18553088 (Version 1)
Quarter: 2020Q4

REPORT INFORMATION
  Report Type: Spontaneous
  Country: US (occurrence: US)
  Receive Date: 20201127
  Receipt Date: 20201127
  Transmission Date: 20210114
  Serious: No
  Sender: FDA-Public Use
  Company Number: US-GW PHARMA-202011USGW04044

PATIENT

DRUGS (4)
  1. EPIDIOLEX [Suspect]
     Active Substance: CANNABIDIOL
     Indication: MYOCLONIC EPILEPSY
     Dosage: 10.66 MG/KG/DAY, 80 MILLIGRAM, BID
     Dates: end: 202002
  2. EPIDIOLEX [Suspect]
     Active Substance: CANNABIDIOL
     Indication: EPILEPSY
     Dosage: 2.66 MG/KG/DAY, 20 MILLIGRAM, BID (INCREASED GRADUALLY TO 80 MILLIGRAM,BID)
     Dates: start: 201908
  3. EPIDIOLEX [Suspect]
     Active Substance: CANNABIDIOL
     Indication: EPILEPSY
     Dosage: 14.81 MG/KG/DAY, 100 MILLIGRAM, BID
     Dates: start: 202002, end: 202007
  4. EPIDIOLEX [Suspect]
     Active Substance: CANNABIDIOL
     Dosage: 18.51 MG/KG/DAY, 250 MILLIGRAM, QD (1 ML IN THE AM AND 1.5 ML AT NIGHT)
     Dates: start: 202007

REACTIONS (2)
  - Gastrostomy tube site complication [Unknown]
  - Product use in unapproved indication [Unknown]

NARRATIVE: CASE EVENT DATE: 202002
